FAERS Safety Report 25158159 (Version 1)
Quarter: 2025Q2

REPORT INFORMATION
  Report Type: Spontaneous
  Country: US (occurrence: US)
  Receive Date: 20250404
  Receipt Date: 20250404
  Transmission Date: 20250717
  Serious: No
  Sender: JOHNSON AND JOHNSON
  Company Number: US-JNJFOC-20250320397

PATIENT
  Sex: Female

DRUGS (7)
  1. INVEGA SUSTENNA [Suspect]
     Active Substance: PALIPERIDONE PALMITATE
     Indication: Schizoaffective disorder
  2. INVEGA SUSTENNA [Suspect]
     Active Substance: PALIPERIDONE PALMITATE
  3. INVEGA SUSTENNA [Suspect]
     Active Substance: PALIPERIDONE PALMITATE
  4. INVEGA TRINZA [Suspect]
     Active Substance: PALIPERIDONE PALMITATE
     Indication: Schizoaffective disorder
     Route: 030
  5. INVEGA TRINZA [Suspect]
     Active Substance: PALIPERIDONE PALMITATE
  6. INVEGA TRINZA [Suspect]
     Active Substance: PALIPERIDONE PALMITATE
  7. PALIPERIDONE [Concomitant]
     Active Substance: PALIPERIDONE
     Dosage: AT NIGHT
     Route: 048

REACTIONS (2)
  - Social avoidant behaviour [Unknown]
  - Therapeutic product effect decreased [Unknown]
